FAERS Safety Report 5130938-1 (Version None)
Quarter: 2006Q4

REPORT INFORMATION
  Report Type: 
  Country: None (occurrence: None)
  Receive Date: 20061019
  Receipt Date: 20061011
  Transmission Date: 20070319
  Serious: Yes (Hospitalization)
  Sender: FDA-Public Use
  Company Number: DE-ABBOTT-06P-062-0346736-00

PATIENT
  Sex: Male
  Weight: 70 kg

DRUGS (21)
  1. ZEMPLAR [Suspect]
     Indication: HYPERPARATHYROIDISM SECONDARY
     Route: 042
  2. ENALAPRIL MALEATE [Concomitant]
     Indication: HYPERTENSION
     Route: 048
     Dates: start: 20051101
  3. ENBRANTIL [Concomitant]
     Indication: HYPERTENSION
     Route: 048
     Dates: start: 20051101
  4. DIOVAN [Concomitant]
     Indication: HYPERTENSION
     Route: 048
     Dates: start: 20060301
  5. AMLODIPINE [Concomitant]
     Indication: HYPERTENSION
     Route: 048
     Dates: start: 20060401
  6. CARVEDILOL [Concomitant]
     Indication: HYPERTENSION
     Route: 048
     Dates: start: 20060101
  7. ASPIRIN [Concomitant]
     Indication: ANTICOAGULANT THERAPY
     Route: 048
     Dates: start: 20050101
  8. DIEISANIT N [Concomitant]
     Indication: HYPOVITAMINOSIS
     Route: 048
     Dates: start: 20050101
  9. SIMVASTATIN [Concomitant]
     Indication: HYPERCHOLESTEROLAEMIA
     Route: 048
     Dates: start: 20050101
  10. PANTOPRAZOLE SODIUM [Concomitant]
     Indication: PROPHYLAXIS AGAINST GASTROINTESTINAL ULCER
     Route: 048
     Dates: start: 20060501
  11. ZINC OROTATE [Concomitant]
     Indication: ZINC DEFICIENCY
     Route: 048
     Dates: start: 20050101
  12. CPS PULO [Concomitant]
     Indication: RENAL FAILURE
     Route: 048
  13. CPS PULO [Concomitant]
     Indication: HYPERKALAEMIA
  14. CALCIUM ACETATE [Concomitant]
     Indication: HYPERPHOSPHATAEMIA
     Route: 048
     Dates: start: 20050101
  15. TORSEMIDE [Concomitant]
     Indication: POLYURIA
     Route: 048
     Dates: start: 20050101
  16. ACETYLCYSTEINE [Concomitant]
     Indication: MUCOUS MEMBRANE DISORDER
     Route: 048
     Dates: start: 20051201
  17. DREISACORB [Concomitant]
     Indication: HYPERPHOSPHATAEMIA
     Route: 048
     Dates: start: 20060701
  18. COFASEL [Concomitant]
     Indication: SELENIUM DEFICIENCY
     Route: 048
     Dates: start: 20051201
  19. PARACODIN N [Concomitant]
     Indication: COUGH
     Route: 048
     Dates: start: 20050101
  20. IMODIUM [Concomitant]
     Indication: DIVERTICULUM
     Route: 048
  21. NEO RECORMON [Concomitant]
     Indication: ANAEMIA
     Route: 042
     Dates: start: 20060301

REACTIONS (2)
  - BLOOD PRESSURE INADEQUATELY CONTROLLED [None]
  - CONFUSIONAL STATE [None]
